FAERS Safety Report 9556255 (Version 1)
Quarter: 2013Q3

REPORT INFORMATION
  Report Type: Report from Study
  Country: US (occurrence: US)
  Receive Date: 20130926
  Receipt Date: 20130926
  Transmission Date: 20140515
  Serious: No
  Sender: FDA-Public Use
  Company Number: PHEH2013US019842

PATIENT
  Sex: Female

DRUGS (8)
  1. TASIGNA [Suspect]
     Dosage: 400 MG, Q12H
     Route: 048
     Dates: start: 20120316
  2. TASIGNA [Suspect]
     Route: 048
  3. TASIGNA [Suspect]
     Dosage: 400 MG, Q12H
     Route: 048
  4. VANCOMYCIN [Concomitant]
  5. POTASSIUM [Concomitant]
  6. SYNTHROID [Concomitant]
  7. VITAMIN C [Concomitant]
  8. CALCIUM [Concomitant]

REACTIONS (1)
  - Headache [Unknown]
